FAERS Safety Report 21452901 (Version 2)
Quarter: 2022Q4

REPORT INFORMATION
  Report Type: Report from Study
  Country: US (occurrence: None)
  Receive Date: 20221013
  Receipt Date: 20221125
  Transmission Date: 20230112
  Serious: Yes (Other)
  Sender: FDA-Public Use
  Company Number: US-ROCHE-3181811

PATIENT
  Age: 80 Year
  Sex: Male
  Weight: 85.3 kg

DRUGS (1)
  1. PIRFENIDONE [Suspect]
     Active Substance: PIRFENIDONE
     Indication: Idiopathic pulmonary fibrosis
     Dosage: ON 12/SEP/2022, RECEIVED THE MOST RECENT DOSE OF PIRFENIDONE 807 MG PRIOR TO AE
     Route: 048
     Dates: start: 20220915

REACTIONS (1)
  - Infusion related reaction [Recovered/Resolved]

NARRATIVE: CASE EVENT DATE: 20220912
